FAERS Safety Report 8830954 (Version 1)
Quarter: 2012Q4

REPORT INFORMATION
  Report Type: 
  Country: US (occurrence: US)
  Receive Date: 20121008
  Receipt Date: 20121008
  Transmission Date: 20130627
  Serious: Yes (Other)
  Sender: FDA-Public Use
  Company Number: US-PFIZER INC-2012245721

PATIENT
  Age: 40 Year
  Sex: Female
  Weight: 74.83 kg

DRUGS (2)
  1. PRISTIQ [Suspect]
     Indication: DEPRESSION
     Dosage: 50 mg, 1x/day
     Route: 048
     Dates: start: 201207
  2. PRISTIQ [Suspect]
     Indication: ANXIETY

REACTIONS (9)
  - Suicidal ideation [Unknown]
  - Anxiety [Unknown]
  - Emotional disorder [Unknown]
  - Stress [Unknown]
  - Malabsorption [Unknown]
  - Drug ineffective [Unknown]
  - Feeling abnormal [Unknown]
  - Activities of daily living impaired [Unknown]
  - Product quality issue [Unknown]
